FAERS Safety Report 4646532-2 (Version None)
Quarter: 2005Q2

REPORT INFORMATION
  Report Type: 
  Country: None (occurrence: None)
  Receive Date: 20050427
  Receipt Date: 20040917
  Transmission Date: 20051028
  Serious: No
  Sender: FDA-Public Use
  Company Number: US-GLAXOSMITHKLINE-A0526337A

PATIENT

DRUGS (17)
  1. FLOVENT [Suspect]
     Indication: ASTHMA
     Dosage: 1PUFF PER DAY
     Dates: start: 20010301
  2. SEREVENT [Suspect]
     Indication: ASTHMA
     Dosage: 1PUFF TWICE PER DAY
     Dates: start: 20000101
  3. ZITHROMAX [Concomitant]
  4. CEFZIL [Concomitant]
  5. CEFTIN [Concomitant]
  6. EXPECTORANT [Concomitant]
  7. ALLEGRA [Concomitant]
  8. ZYRTEC [Concomitant]
  9. SINGULAIR [Concomitant]
  10. SYNTHROID [Concomitant]
  11. ALBUTEROL [Concomitant]
  12. SUDAFED 12 HOUR [Concomitant]
  13. PRENATAL VITAMINS [Concomitant]
  14. IRON PILLS [Concomitant]
  15. THEOPHYLLINE [Concomitant]
  16. PROVENTIL [Concomitant]
  17. NASACORT AQ [Concomitant]

REACTIONS (1)
  - DRUG EXPOSURE DURING PREGNANCY [None]
